FAERS Safety Report 12222920 (Version 1)
Quarter: 2016Q1

REPORT INFORMATION
  Report Type: Spontaneous
  Country: US (occurrence: US)
  Receive Date: 20160330
  Receipt Date: 20160330
  Transmission Date: 20160526
  Serious: No
  Sender: FDA-Public Use
  Company Number: US-PERRIGO-12US010576

PATIENT
  Age: 24 Year
  Sex: Male
  Weight: 45.35 kg

DRUGS (3)
  1. ACETAMINOPHEN. [Suspect]
     Active Substance: ACETAMINOPHEN
     Indication: TOOTHACHE
     Dosage: 1300 MG, SINGLE
     Route: 048
     Dates: start: 20150513, end: 20150513
  2. ACETAMINOPHEN. [Suspect]
     Active Substance: ACETAMINOPHEN
     Indication: PAIN
     Dosage: 1950 TO 2600 MG, SINGLE
     Route: 048
     Dates: start: 201109, end: 201109
  3. ACETAMINOPHEN. [Suspect]
     Active Substance: ACETAMINOPHEN
     Indication: PYREXIA
     Dosage: 650 TO 1300 MG, QD
     Route: 048
     Dates: start: 201106, end: 201109

REACTIONS (7)
  - Headache [Recovered/Resolved]
  - Expired product administered [Recovered/Resolved]
  - Dizziness [Recovered/Resolved]
  - Underdose [Recovered/Resolved]
  - Incorrect dose administered [Recovered/Resolved]
  - Drug ineffective [Unknown]
  - Incorrect drug administration duration [Recovered/Resolved]

NARRATIVE: CASE EVENT DATE: 201106
